FAERS Safety Report 22523017 (Version 1)
Quarter: 2023Q2

REPORT INFORMATION
  Report Type: Spontaneous
  Country: MY (occurrence: MY)
  Receive Date: 20230606
  Receipt Date: 20230606
  Transmission Date: 20230722
  Serious: Yes (Other)
  Sender: FDA-Public Use
  Company Number: MY-AMGEN-MYSSP2023093399

PATIENT
  Age: 72 Year
  Sex: Male

DRUGS (4)
  1. MVASI [Suspect]
     Active Substance: BEVACIZUMAB-AWWB
     Indication: Adenocarcinoma of colon
     Dosage: UNK
     Route: 065
     Dates: start: 20220213
  2. CAPECITABINE\OXALIPLATIN [Concomitant]
     Active Substance: CAPECITABINE\OXALIPLATIN
     Indication: Adenocarcinoma of colon
     Dosage: UNK
     Dates: start: 20220213
  3. PANITUMUMAB [Concomitant]
     Active Substance: PANITUMUMAB
     Dosage: 6 MILLIGRAM PER KG, Q2WK
     Dates: start: 20221221
  4. FLUOROURACIL\IRINOTECAN\LEUCOVORIN [Concomitant]
     Active Substance: FLUOROURACIL\IRINOTECAN\LEUCOVORIN
     Dosage: UNK UNK, Q2WK

REACTIONS (2)
  - Adenocarcinoma of colon [Unknown]
  - Renal cyst [Unknown]

NARRATIVE: CASE EVENT DATE: 20221208
